FAERS Safety Report 9095941 (Version 2)
Quarter: 2013Q1

REPORT INFORMATION
  Report Type: Report from Study
  Country: US (occurrence: US)
  Receive Date: 20130219
  Receipt Date: 20130325
  Transmission Date: 20140127
  Serious: Yes (Hospitalization)
  Sender: FDA-Public Use
  Company Number: US-ACTELION-A-US2013-79307

PATIENT
  Age: 42 Year
  Sex: Male

DRUGS (1)
  1. TRACLEER [Suspect]
     Indication: PULMONARY ARTERIAL HYPERTENSION
     Route: 048

REACTIONS (5)
  - Musculoskeletal discomfort [Unknown]
  - Swelling [Unknown]
  - Fall [Recovering/Resolving]
  - Sciatic nerve injury [Recovering/Resolving]
  - Back injury [Recovering/Resolving]
